FAERS Safety Report 18132553 (Version 3)
Quarter: 2020Q3

REPORT INFORMATION
  Report Type: Report from Study
  Country: US (occurrence: US)
  Receive Date: 20200811
  Receipt Date: 20200820
  Transmission Date: 20201103
  Serious: No
  Sender: FDA-Public Use
  Company Number: US-009507513-2008USA005979

PATIENT
  Age: 31 Year
  Sex: Female
  Weight: 95.24 kg

DRUGS (1)
  1. IMPLANON [Suspect]
     Active Substance: ETONOGESTREL
     Indication: CONTRACEPTION
     Dosage: 68 MILLIGRAM (1 IMPLANT), IN LEFT ARM, ONCE EVERY 3 YEARS (STRENGTH: 68 MG)
     Route: 059
     Dates: start: 20170709

REACTIONS (2)
  - Mood swings [Unknown]
  - Incorrect product administration duration [Unknown]

NARRATIVE: CASE EVENT DATE: 20170709
